FAERS Safety Report 6580867-1 (Version None)
Quarter: 2010Q1

REPORT INFORMATION
  Report Type: 
  Country: None (occurrence: None)
  Receive Date: 20100203
  Receipt Date: 20100119
  Transmission Date: 20100710
  Serious: Yes (Other)
  Sender: FDA-Public Use
  Company Number: 2009S1004152

PATIENT
  Age: 65 Year
  Sex: Male

DRUGS (8)
  1. PHOSPHOSODA FLAVOR NOT SPECIFIED [Suspect]
     Indication: COLONOSCOPY
     Dosage: 90 ML;TOTAL;PO
     Route: 048
     Dates: start: 20080824, end: 20080825
  2. PLAVIX [Concomitant]
  3. METOPROLOL TARTRATE [Concomitant]
  4. ASPIRIN [Concomitant]
  5. NEXIUM [Concomitant]
  6. ZOCOR [Concomitant]
  7. AMIODARONE [Concomitant]
  8. NITROSTAT [Concomitant]

REACTIONS (4)
  - BLOOD CREATINE INCREASED [None]
  - GLOMERULAR FILTRATION RATE DECREASED [None]
  - NEPHROCALCINOSIS [None]
  - RENAL DISORDER [None]
